FAERS Safety Report 7957273-8 (Version None)
Quarter: 2011Q4

REPORT INFORMATION
  Report Type: 
  Country: None (occurrence: None)
  Receive Date: 20111130
  Receipt Date: 20111115
  Transmission Date: 20120403
  Serious: Yes (Other)
  Sender: FDA-Public Use
  Company Number: FR-SEPTODONT-201100177

PATIENT
  Age: 44 Year
  Sex: Female
  Weight: 60 kg

DRUGS (2)
  1. YRANICID WITHOUT ARSENIC DENTAL PASTE [Suspect]
     Dosage: DENTAL
     Route: 004
     Dates: start: 20110922
  2. DELTAZINE (ARTICAINE HCL AND SPINEPHRINE) 1:100,00 [Suspect]
     Indication: LOCAL ANAESTHESIA
     Dosage: DENTAL CARTRIDGES
     Route: 004
     Dates: start: 20110922

REACTIONS (3)
  - DENTAL NECROSIS [None]
  - PAIN [None]
  - ANAESTHETIC COMPLICATION [None]
